FAERS Safety Report 9723706 (Version 1)
Quarter: 2013Q4

REPORT INFORMATION
  Report Type: Spontaneous
  Country: US (occurrence: US)
  Receive Date: 20131202
  Receipt Date: 20131202
  Transmission Date: 20140711
  Serious: Yes (Hospitalization, Other)
  Sender: FDA-Public Use
  Company Number: US-PFIZER INC-2013339962

PATIENT
  Age: 57 Year
  Sex: Female
  Weight: 98.41 kg

DRUGS (4)
  1. NEURONTIN [Suspect]
     Indication: DEPRESSION
     Dosage: 800 MG, 2X/DAY
  2. NEURONTIN [Suspect]
     Indication: ANXIETY DISORDER
     Dosage: 800 MG, 1X/DAY
  3. GABAPENTIN [Suspect]
     Indication: DEPRESSION
     Dosage: 800 MG, 2X/DAY
  4. GABAPENTIN [Suspect]
     Indication: ANXIETY DISORDER
     Dosage: 800 MG, 1X/DAY

REACTIONS (10)
  - Off label use [Unknown]
  - Drug dispensing error [Unknown]
  - Fall [Unknown]
  - Joint injury [Unknown]
  - Concussion [Unknown]
  - Vision blurred [Unknown]
  - Coordination abnormal [Unknown]
  - Local swelling [Unknown]
  - Joint swelling [Unknown]
  - Dizziness [Unknown]
